FAERS Safety Report 14402173 (Version 1)
Quarter: 2018Q1

REPORT INFORMATION
  Report Type: Spontaneous
  Country: US (occurrence: US)
  Receive Date: 20180117
  Receipt Date: 20180117
  Transmission Date: 20180509
  Serious: No
  Sender: FDA-Public Use
  Company Number: US-JNJFOC-20171035965

PATIENT
  Sex: Female
  Weight: 43.55 kg

DRUGS (2)
  1. TREMFYA [Suspect]
     Active Substance: GUSELKUMAB
     Indication: PSORIASIS
     Route: 058
     Dates: start: 20171027
  2. OTEZLA [Concomitant]
     Active Substance: APREMILAST
     Indication: PSORIASIS

REACTIONS (1)
  - Injection site reaction [Recovered/Resolved]
